FAERS Safety Report 4500851-9 (Version None)
Quarter: 2004Q4

REPORT INFORMATION
  Report Type: 
  Country: None (occurrence: None)
  Receive Date: 20041109
  Receipt Date: 20041017
  Transmission Date: 20050328
  Serious: Yes (Other)
  Sender: FDA-Public Use
  Company Number: 200415294BCC

PATIENT
  Age: 67 Year
  Sex: Female
  Weight: 70.3075 kg

DRUGS (5)
  1. MILK OF MAGNESIA TAB [Suspect]
     Indication: CONSTIPATION
     Dosage: 60 MG, QD, ORAL
     Route: 048
     Dates: start: 20041013, end: 20041018
  2. ATENOLOL [Concomitant]
  3. HYTRIN [Concomitant]
  4. CAXIDE [Concomitant]
  5. NITROGLYCERINE CREAM [Concomitant]

REACTIONS (2)
  - HAEMATOCHEZIA [None]
  - MELAENA [None]
